FAERS Safety Report 6762145-0 (Version None)
Quarter: 2010Q2

REPORT INFORMATION
  Report Type: 
  Country: None (occurrence: None)
  Receive Date: 20100609
  Receipt Date: 20100526
  Transmission Date: 20101027
  Serious: Yes (Life-Threatening, Hospitalization)
  Sender: FDA-Public Use
  Company Number: DE-MYLANLABS-2010S1006784

PATIENT
  Age: 84 Year
  Sex: Female
  Weight: 72 kg

DRUGS (11)
  1. SPIRONOLACTONE [Suspect]
     Indication: HYPERTENSION
     Route: 048
     Dates: start: 20091006, end: 20091126
  2. RAMIPRIL [Interacting]
     Indication: HYPERTENSION
     Route: 048
     Dates: start: 20091006, end: 20091126
  3. TORSEMIDE [Interacting]
     Indication: HYPERTENSION
     Route: 048
     Dates: start: 20091006, end: 20091126
  4. MELPERON 25 [Interacting]
     Indication: VASCULAR DEMENTIA
     Route: 048
     Dates: start: 20091006, end: 20091126
  5. XIPAMID [Interacting]
     Indication: HYPERTENSION
     Route: 048
     Dates: start: 20091006, end: 20091126
  6. MICTONORM [Interacting]
     Indication: STRESS URINARY INCONTINENCE
     Route: 048
     Dates: start: 20091006, end: 20091126
  7. BIPERIDEN HYDROCHLORIDE TAB [Concomitant]
     Indication: EXTRAPYRAMIDAL DISORDER
     Route: 048
     Dates: start: 20091006
  8. ZOLPIDEM [Concomitant]
     Indication: INITIAL INSOMNIA
     Route: 048
     Dates: start: 20091006, end: 20091126
  9. PANTOPRAZOLE [Concomitant]
     Indication: PROPHYLAXIS AGAINST GASTROINTESTINAL ULCER
     Route: 048
     Dates: start: 20091006, end: 20091126
  10. CLOPIDOGREL [Concomitant]
     Indication: ISCHAEMIC HEART DISEASE PROPHYLAXIS
     Route: 048
     Dates: start: 20091006
  11. SIMVASTATIN [Concomitant]
     Indication: ISCHAEMIC HEART DISEASE PROPHYLAXIS
     Route: 048
     Dates: start: 20091006, end: 20091126

REACTIONS (6)
  - ACUTE PRERENAL FAILURE [None]
  - DEHYDRATION [None]
  - DRUG INTERACTION [None]
  - HYPOTENSION [None]
  - PLEURAL EFFUSION [None]
  - RENAL FAILURE ACUTE [None]
